FAERS Safety Report 6660222-6 (Version None)
Quarter: 2010Q1

REPORT INFORMATION
  Report Type: 
  Country: None (occurrence: None)
  Receive Date: 20100331
  Receipt Date: 20100302
  Transmission Date: 20100710
  Serious: No
  Sender: FDA-Public Use
  Company Number: 2009BI029892

PATIENT
  Age: 48 Year
  Sex: Male

DRUGS (1)
  1. TYSABRI [Suspect]
     Indication: MULTIPLE SCLEROSIS
     Route: 042
     Dates: start: 20090814

REACTIONS (8)
  - AMNESIA [None]
  - ARTHRALGIA [None]
  - DISTURBANCE IN ATTENTION [None]
  - FATIGUE [None]
  - INSOMNIA [None]
  - MYALGIA [None]
  - OSTEOARTHRITIS [None]
  - RHEUMATOID ARTHRITIS [None]
